FAERS Safety Report 8807779 (Version 2)
Quarter: 2012Q4

REPORT INFORMATION
  Report Type: 
  Country: US (occurrence: US)
  Receive Date: 20120925
  Receipt Date: 20121009
  Transmission Date: 20130627
  Serious: No
  Sender: FDA-Public Use
  Company Number: US-ASTRAZENECA-2012SE71808

PATIENT
  Age: 63 Year
  Sex: Female

DRUGS (1)
  1. NEXIUM [Suspect]
     Route: 048

REACTIONS (9)
  - Hiatus hernia [Unknown]
  - Contusion [Unknown]
  - Dyspepsia [Unknown]
  - Regurgitation [Unknown]
  - Sleep disorder due to a general medical condition [Unknown]
  - Malaise [Unknown]
  - Abdominal discomfort [Unknown]
  - Nausea [Unknown]
  - Drug dose omission [Unknown]
